FAERS Safety Report 7753918-6 (Version None)
Quarter: 2011Q3

REPORT INFORMATION
  Report Type: 
  Country: None (occurrence: None)
  Receive Date: 20110913
  Receipt Date: 20110830
  Transmission Date: 20111222
  Serious: Yes (Death, Hospitalization, Other)
  Sender: FDA-Public Use
  Company Number: 2011MA012729

PATIENT
  Age: 64 Year
  Sex: Male
  Weight: 104.6 kg

DRUGS (17)
  1. ALLOPURINOL [Concomitant]
  2. HYDROXYZINE HYDROCHLORIDE [Concomitant]
  3. LORTAB [Concomitant]
  4. INSULIN [Concomitant]
  5. DIGOXIN [Suspect]
     Indication: HEART RATE IRREGULAR
     Dosage: 0.125 MG; QD
     Dates: start: 20060623, end: 20080216
  6. COUMADIN [Concomitant]
  7. COLCHICINE [Concomitant]
  8. ENALAPRIL MALEATE [Concomitant]
  9. SYNTHROID [Concomitant]
  10. XANAX [Concomitant]
  11. ASPIRIN [Concomitant]
  12. LIPITOR [Concomitant]
  13. DIGIBIND [Concomitant]
  14. AMIODARONE HCL [Concomitant]
  15. LASIX [Concomitant]
  16. POTASSIUM CHLORIDE [Concomitant]
  17. ATENOLOL [Concomitant]

REACTIONS (23)
  - METASTATIC RENAL CELL CARCINOMA [None]
  - RENAL TUBULAR NECROSIS [None]
  - DRUG LEVEL CHANGED [None]
  - TACHYPNOEA [None]
  - STAPHYLOCOCCAL BACTERAEMIA [None]
  - SYNCOPE [None]
  - GENERAL PHYSICAL HEALTH DETERIORATION [None]
  - MULTIPLE INJURIES [None]
  - URINE OUTPUT DECREASED [None]
  - FATIGUE [None]
  - FALL [None]
  - SINUS BRADYCARDIA [None]
  - VISUAL IMPAIRMENT [None]
  - CONFUSIONAL STATE [None]
  - RENAL FAILURE ACUTE [None]
  - CARDIOACTIVE DRUG LEVEL INCREASED [None]
  - PERICARDIAL EFFUSION [None]
  - ASTHENIA [None]
  - TOXICITY TO VARIOUS AGENTS [None]
  - HYPOTENSION [None]
  - HYPERKALAEMIA [None]
  - RENAL FAILURE CHRONIC [None]
  - ATRIAL FIBRILLATION [None]
